FAERS Safety Report 21945419 (Version 2)
Quarter: 2023Q1

REPORT INFORMATION
  Report Type: Spontaneous
  Country: CH (occurrence: CH)
  Receive Date: 20230202
  Receipt Date: 20230221
  Transmission Date: 20230417
  Serious: Yes (Hospitalization)
  Sender: FDA-Public Use
  Company Number: CH-ACRAF SpA-2023-029772

PATIENT

DRUGS (8)
  1. XCOPRI [Suspect]
     Active Substance: CENOBAMATE
     Indication: Epilepsy
     Dosage: 200 MILLIGRAM
     Route: 048
     Dates: start: 202210
  2. PANTOZOL                           /01263204/ [Concomitant]
     Indication: Product used for unknown indication
     Dosage: 40 MILLIGRAM TABLETS 1-0-0-0 TABLE
     Route: 048
  3. BRIVIACT [Concomitant]
     Active Substance: BRIVARACETAM
     Indication: Product used for unknown indication
     Dosage: 100 MG TABLETS, 1-0-1-0 TABLE
     Route: 048
  4. VIMPAT [Concomitant]
     Active Substance: LACOSAMIDE
     Indication: Product used for unknown indication
     Dosage: 200 MG TABLETS, 1-0-1-0 TABLE
     Route: 048
  5. TIROSINT [Concomitant]
     Active Substance: LEVOTHYROXINE SODIUM
     Indication: Product used for unknown indication
     Dosage: 112 MCG CAPSULES, 1-0-0-0 CAPSULE
     Route: 048
  6. FOLIC ACID [Concomitant]
     Active Substance: FOLIC ACID
     Indication: Product used for unknown indication
     Dosage: 5 MG TABLETS, 1-0-0-0 TABLE EVERY WEEK, ORAL USE (1 IN 1 WK)
     Route: 048
  7. FERROUS SULFATE [Concomitant]
     Active Substance: FERROUS SULFATE
     Indication: Product used for unknown indication
     Dosage: 80 MG RETARD TABLETS, 1-0-0-0 RETARD TABLE, ORAL USE
     Route: 048
  8. CHOLECALCIFEROL [Concomitant]
     Active Substance: CHOLECALCIFEROL
     Indication: Product used for unknown indication
     Dosage: 4000 IU/ML ORAL SOLUTION 10 ML, 800-0-0-0 IU, ORAL USE (800 IU = 0.2 ML)
     Route: 048

REACTIONS (5)
  - Acute kidney injury [Recovering/Resolving]
  - Anaemia [Recovering/Resolving]
  - Nausea [Recovered/Resolved]
  - Diarrhoea [Recovered/Resolved]
  - Gastrointestinal disorder [Recovered/Resolved]

NARRATIVE: CASE EVENT DATE: 20221101
